FAERS Safety Report 6269495-5 (Version None)
Quarter: 2009Q3

REPORT INFORMATION
  Report Type: 
  Country: None (occurrence: None)
  Receive Date: 20090714
  Receipt Date: 20090703
  Transmission Date: 20100115
  Serious: Yes (Life-Threatening, Hospitalization)
  Sender: FDA-Public Use
  Company Number: 2009AP002693

PATIENT
  Age: 79 Year
  Sex: Male

DRUGS (6)
  1. RAMIPRIL [Suspect]
     Indication: DRESSLER'S SYNDROME
     Dosage: 2.5 MG; PO
     Route: 048
  2. RAMIPRIL [Suspect]
     Indication: LEFT VENTRICULAR DYSFUNCTION
     Dosage: 2.5 MG; PO
     Route: 048
  3. ASPIRIN [Concomitant]
  4. METOPROLOL SUCCINATE [Concomitant]
  5. SIMVASTATIN [Concomitant]
  6. . [Concomitant]

REACTIONS (2)
  - ANGIOEDEMA [None]
  - URTICARIA PAPULAR [None]
